FAERS Safety Report 18740421 (Version 1)
Quarter: 2021Q1

REPORT INFORMATION
  Report Type: Spontaneous
  Country: US (occurrence: US)
  Receive Date: 20210113
  Receipt Date: 20210113
  Transmission Date: 20210419
  Serious: No
  Sender: FDA-Public Use
  Company Number: None

PATIENT
  Age: 72 Year
  Sex: Female

DRUGS (1)
  1. HUMIRA [Suspect]
     Active Substance: ADALIMUMAB
     Indication: RHEUMATOID ARTHRITIS
     Dosage: 4O MG SC EVERY 2 WEEKS IN THE ABDOMEN OR THIGH (ROTTE SITES) AS DIRECTED
     Route: 058
     Dates: start: 202008

REACTIONS (1)
  - COVID-19 [None]
